FAERS Safety Report 11491671 (Version 3)
Quarter: 2016Q4

REPORT INFORMATION
  Report Type: Spontaneous
  Country: US (occurrence: US)
  Receive Date: 20150910
  Receipt Date: 20161007
  Transmission Date: 20170206
  Serious: Yes (Congenital Anomaly, Other)
  Sender: FDA-Public Use
  Company Number: US-APOTEX-2015AP012589

PATIENT
  Sex: Female
  Weight: 3 kg

DRUGS (2)
  1. PAXIL [Suspect]
     Active Substance: PAROXETINE HYDROCHLORIDE
     Indication: DEPRESSION
     Dosage: UNK
     Route: 064
  2. PAXIL [Suspect]
     Active Substance: PAROXETINE HYDROCHLORIDE
     Indication: ANXIETY
     Dosage: 20 MG, UNK
     Route: 064

REACTIONS (8)
  - Fallot^s tetralogy [Unknown]
  - Heart disease congenital [Unknown]
  - Aortic valve incompetence [Unknown]
  - Bundle branch block right [Unknown]
  - Congenital tracheomalacia [Unknown]
  - Congenital pulmonary valve disorder [Unknown]
  - Tracheomalacia [Unknown]
  - Foetal exposure during pregnancy [Unknown]
